FAERS Safety Report 17778752 (Version 1)
Quarter: 2020Q2

REPORT INFORMATION
  Report Type: Spontaneous
  Country: US (occurrence: US)
  Receive Date: 20200513
  Receipt Date: 20200513
  Transmission Date: 20200714
  Serious: No
  Sender: FDA-Public Use
  Company Number: US-ELI_LILLY_AND_COMPANY-US202005003528

PATIENT
  Age: 30 Year
  Sex: Female

DRUGS (1)
  1. EMGALITY [Suspect]
     Active Substance: GALCANEZUMAB-GNLM
     Indication: MIGRAINE
     Dosage: 120 MG, UNKNOWN
     Route: 058
     Dates: start: 201907

REACTIONS (3)
  - Product dose omission [Unknown]
  - Injection site pain [Unknown]
  - Injection site injury [Unknown]

NARRATIVE: CASE EVENT DATE: 20200509
